FAERS Safety Report 12900244 (Version 2)
Quarter: 2016Q4

REPORT INFORMATION
  Report Type: Spontaneous
  Country: CA (occurrence: CA)
  Receive Date: 20161101
  Receipt Date: 20161122
  Transmission Date: 20170207
  Serious: Yes (Other)
  Sender: FDA-Public Use
  Company Number: CA-BEH-2016060318

PATIENT
  Age: 43 Year
  Sex: Female

DRUGS (2)
  1. ALBUREX [Suspect]
     Active Substance: ALBUMIN HUMAN
     Indication: PRODUCT USED FOR UNKNOWN INDICATION
     Dosage: 4/4 FRACTION
     Route: 065
     Dates: start: 20160212, end: 20160212
  2. RIASTAP [Suspect]
     Active Substance: FIBRINOGEN HUMAN
     Indication: PRODUCT USED FOR UNKNOWN INDICATION
     Dosage: FRACTION: 3/4
     Route: 065
     Dates: start: 20160212, end: 20160212

REACTIONS (6)
  - Respiratory rate increased [Recovered/Resolved]
  - Agitation [Recovered/Resolved]
  - Transfusion-associated dyspnoea [Recovered/Resolved]
  - Heart rate increased [Recovered/Resolved]
  - Blood pressure decreased [Recovered/Resolved]
  - Feeling abnormal [Recovered/Resolved]

NARRATIVE: CASE EVENT DATE: 20160212
